APPROVED DRUG PRODUCT: THAM-E
Active Ingredient: POTASSIUM CHLORIDE; SODIUM CHLORIDE; TROMETHAMINE
Strength: 370MG/VIAL;1.75GM/VIAL;36GM/VIAL
Dosage Form/Route: INJECTABLE;INJECTION
Application: N013025 | Product #001
Applicant: HOSPIRA INC
Approved: Approved Prior to Jan 1, 1982 | RLD: No | RS: No | Type: DISCN